FAERS Safety Report 8600456-4 (Version None)
Quarter: 2012Q3

REPORT INFORMATION
  Report Type: 
  Country: None (occurrence: None)
  Receive Date: 20120817
  Receipt Date: 20120809
  Transmission Date: 20120928
  Serious: Yes (Other)
  Sender: FDA-Public Use
  Company Number: US-ELI_LILLY_AND_COMPANY-US201208003315

PATIENT
  Age: 63 Year
  Sex: Female

DRUGS (9)
  1. CYMBALTA [Suspect]
     Indication: DEPRESSION
     Dosage: 60 MG, QD
     Dates: start: 20110601
  2. ASPIRIN [Concomitant]
  3. NEXIUM [Concomitant]
  4. TRICOR [Concomitant]
  5. SEROQUEL [Concomitant]
  6. ALPRAZOLAM [Concomitant]
     Dosage: 3 MG, UNKNOWN
  7. CYMBALTA [Suspect]
     Dosage: UNK UNK, QOD
  8. OMEGA-3                            /01866101/ [Concomitant]
  9. SINEMET [Concomitant]
     Dosage: 1 DF, BID

REACTIONS (6)
  - GLOSSODYNIA [None]
  - SKIN LESION [None]
  - STOMATITIS [None]
  - MUSCLE SPASMS [None]
  - CONTUSION [None]
  - INTENTIONAL DRUG MISUSE [None]
